FAERS Safety Report 4870633-7 (Version None)
Quarter: 2005Q4

REPORT INFORMATION
  Report Type: 
  Country: None (occurrence: None)
  Receive Date: 20051228
  Receipt Date: 20051213
  Transmission Date: 20060501
  Serious: Yes (Other)
  Sender: FDA-Public Use
  Company Number: US200512002315

PATIENT
  Sex: Male

DRUGS (2)
  1. ZYPREXA [Suspect]
     Indication: DEPRESSION
     Dosage: 20 MG, 2/D
     Dates: start: 19980101
  2. ASA (ASPIRIN (ACETYSALICYLIC ACID) UNKNOWN FORMULATION) [Concomitant]

REACTIONS (8)
  - COUGH [None]
  - INCREASED APPETITE [None]
  - INSOMNIA [None]
  - INTESTINAL HAEMORRHAGE [None]
  - LOSS OF CONSCIOUSNESS [None]
  - SMALL INTESTINAL PERFORATION [None]
  - VISION BLURRED [None]
  - WEIGHT INCREASED [None]
